FAERS Safety Report 4318069-1 (Version None)
Quarter: 2004Q1

REPORT INFORMATION
  Report Type: 
  Country: None (occurrence: None)
  Receive Date: 20040315
  Receipt Date: 20040227
  Transmission Date: 20041129
  Serious: Yes (Death)
  Sender: FDA-Public Use
  Company Number: F01200400389

PATIENT
  Age: 65 Year
  Sex: Male

DRUGS (6)
  1. OXALIPLATIN [Suspect]
     Indication: COLORECTAL CANCER METASTATIC
     Dosage: 193 MG Q3W, 1600 MG/DAY FROM DAY TO DAY 14, INTRAVENOUS NOS
     Route: 042
     Dates: start: 20040223, end: 20040223
  2. CAPECITABINE [Suspect]
     Dosage: Q3W, ORAL
     Route: 048
     Dates: start: 20040223, end: 20040223
  3. DARVOCET (DEXTROPROPOXYPHEN NAPSILATE+PARACETAMOL) [Concomitant]
  4. MEGACE [Concomitant]
  5. COMPAZINE [Concomitant]
  6. PROCRIT (ERYTHROPOIETIN) [Concomitant]

REACTIONS (14)
  - BACILLUS INFECTION [None]
  - BACTERIAL INFECTION [None]
  - BLOOD ALBUMIN DECREASED [None]
  - BLOOD BILIRUBIN INCREASED [None]
  - BLOOD CREATININE INCREASED [None]
  - BLOOD GLUCOSE DECREASED [None]
  - CULTURE URINE POSITIVE [None]
  - DEHYDRATION [None]
  - DIARRHOEA [None]
  - ELECTROCARDIOGRAM POOR R-WAVE PROGRESSION [None]
  - PNEUMONIA [None]
  - PROTEIN URINE PRESENT [None]
  - SINUS TACHYCARDIA [None]
  - SPECIFIC GRAVITY URINE INCREASED [None]
